FAERS Safety Report 10191467 (Version 1)
Quarter: 2014Q2

REPORT INFORMATION
  Report Type: Spontaneous
  Country: BR (occurrence: BR)
  Receive Date: 20140523
  Receipt Date: 20140523
  Transmission Date: 20141212
  Serious: Yes (Other)
  Sender: FDA-Public Use
  Company Number: BR-ELI_LILLY_AND_COMPANY-BR201405004721

PATIENT
  Age: 70 Year
  Sex: Female
  Weight: 56 kg

DRUGS (5)
  1. HUMALOG [Suspect]
     Indication: PRODUCT USED FOR UNKNOWN INDICATION
     Dosage: 14 IU, EACH MORNING
     Route: 058
     Dates: start: 20110830
  2. HUMALOG [Suspect]
     Dosage: 6 IU, UNK
     Route: 058
     Dates: start: 20110830
  3. HUMALOG [Suspect]
     Dosage: 12 IU, EACH EVENING
     Route: 058
     Dates: start: 20110830
  4. GLIFAGE [Concomitant]
     Dosage: UNK, QD
     Route: 065
  5. SINVASTATINA [Concomitant]
     Dosage: UNK, EACH EVENING
     Route: 065

REACTIONS (3)
  - Dementia Alzheimer^s type [Not Recovered/Not Resolved]
  - Speech disorder [Not Recovered/Not Resolved]
  - Cognitive disorder [Not Recovered/Not Resolved]
